FAERS Safety Report 6708307-X (Version None)
Quarter: 2010Q2

REPORT INFORMATION
  Report Type: 
  Country: None (occurrence: None)
  Receive Date: 20100503
  Receipt Date: 20091105
  Transmission Date: 20101027
  Serious: No
  Sender: FDA-Public Use
  Company Number: US-ASTRAZENECA-2009SE24613

PATIENT
  Age: 65 Year
  Sex: Female

DRUGS (2)
  1. NEXIUM [Suspect]
     Indication: EROSIVE OESOPHAGITIS
     Route: 048
     Dates: start: 20040101
  2. NEXIUM [Suspect]
     Indication: GASTROOESOPHAGEAL REFLUX DISEASE
     Route: 048
     Dates: start: 20040101

REACTIONS (7)
  - ADIPOSIS DOLOROSA [None]
  - ALOPECIA [None]
  - CONNECTIVE TISSUE DISORDER [None]
  - DYSPHONIA [None]
  - FIBROMYALGIA [None]
  - THYROID DISORDER [None]
  - VOMITING [None]
